FAERS Safety Report 7624847 (Version 4)
Quarter: 2013Q4

REPORT INFORMATION
  Report Type: Spontaneous
  Country: US (occurrence: US)
  Receive Date: 20101012
  Receipt Date: 20131226
  Transmission Date: 20140711
  Serious: Yes (Other)
  Sender: FDA-Public Use
  Company Number: US-BAYER-201036323NA

PATIENT
  Age: 24 Year
  Sex: Female
  Weight: 129 kg

DRUGS (4)
  1. YAZ [Suspect]
     Indication: PRODUCT USED FOR UNKNOWN INDICATION
     Dosage: UNK
     Route: 048
     Dates: start: 200807, end: 200901
  2. YAZ [Suspect]
     Indication: PRODUCT USED FOR UNKNOWN INDICATION
     Dosage: UNK
     Dates: start: 200808, end: 200901
  3. DARVON [Concomitant]
     Dosage: 100 MG, UNK
     Route: 048
     Dates: start: 20081106
  4. ELMIRON [Concomitant]
     Dosage: 100 MG, TID
     Route: 048

REACTIONS (3)
  - Gallbladder disorder [Unknown]
  - Cholelithiasis [None]
  - Cholecystitis [None]
